FAERS Safety Report 6500312-1 (Version None)
Quarter: 2009Q4

REPORT INFORMATION
  Report Type: 
  Country: None (occurrence: None)
  Receive Date: 20091215
  Receipt Date: 20091215
  Transmission Date: 20100525
  Serious: Yes (Hospitalization)
  Sender: FDA-Public Use
  Company Number: None

PATIENT
  Age: 79 Year
  Sex: Male
  Weight: 138.8 kg

DRUGS (1)
  1. WARFARIN SODIUM [Suspect]
     Indication: CEREBROVASCULAR ACCIDENT
     Dosage: 55 MG QWEEK PO
     Route: 048
     Dates: start: 20071214, end: 20081231

REACTIONS (15)
  - ANAEMIA [None]
  - AORTIC ANEURYSM [None]
  - ARTERIOVENOUS MALFORMATION [None]
  - CEREBRAL HAEMORRHAGE [None]
  - COMMINUTED FRACTURE [None]
  - CONTUSION [None]
  - DIEULAFOY'S VASCULAR MALFORMATION [None]
  - DYSPNOEA [None]
  - EPISTAXIS [None]
  - FACIAL BONES FRACTURE [None]
  - FALL [None]
  - FATIGUE [None]
  - HAND FRACTURE [None]
  - INTERNATIONAL NORMALISED RATIO INCREASED [None]
  - SMALL INTESTINAL HAEMORRHAGE [None]
